FAERS Safety Report 4365496-2 (Version None)
Quarter: 2004Q2

REPORT INFORMATION
  Report Type: 
  Country: None (occurrence: None)
  Receive Date: 20040520
  Receipt Date: 20040507
  Transmission Date: 20050107
  Serious: Yes (Death)
  Sender: FDA-Public Use
  Company Number: US-JNJFOC-20040501581

PATIENT
  Age: 55 Year
  Sex: Female

DRUGS (8)
  1. INFLIXIMAB LYOPHILIZED POWDER (INFLIXIMAB, RECOMBINANT) [Suspect]
     Indication: RHEUMATOID ARTHRITIS
     Dosage: INTRAVENOUS
     Route: 042
     Dates: start: 20020128
  2. INFLIXIMAB LYOPHILIZED POWDER (INFLIXIMAB, RECOMBINANT) [Suspect]
     Indication: RHEUMATOID ARTHRITIS
     Dosage: INTRAVENOUS
     Route: 042
     Dates: start: 20020301
  3. NEXIUM [Concomitant]
  4. PREDNISONE [Concomitant]
  5. SYNTHROID [Concomitant]
  6. EPOGEN [Concomitant]
  7. ESTROGEN (ESTROGEN NOS) [Concomitant]
  8. FOLIC ACID [Concomitant]

REACTIONS (2)
  - INFECTION [None]
  - PHLEBITIS [None]
